FAERS Safety Report 25987913 (Version 1)
Quarter: 2025Q4

REPORT INFORMATION
  Report Type: Other
  Country: CA (occurrence: CA)
  Receive Date: 20251103
  Receipt Date: 20251103
  Transmission Date: 20260118
  Serious: Yes (Other)
  Sender: Atnahs Healthcare
  Company Number: CA-ATNAHS-2025-PMNV-CA001580

PATIENT

DRUGS (1)
  1. ANAPROX [Suspect]
     Active Substance: NAPROXEN SODIUM
     Indication: Back pain
     Dosage: UNK
     Route: 065

REACTIONS (6)
  - Wheezing [Unknown]
  - Drug hypersensitivity [Unknown]
  - Chest pain [Unknown]
  - Electrocardiogram ST segment elevation [Unknown]
  - Hypotension [Unknown]
  - Urticaria [Unknown]
